FAERS Safety Report 12473270 (Version 3)
Quarter: 2016Q3

REPORT INFORMATION
  Report Type: Spontaneous
  Country: JP (occurrence: JP)
  Receive Date: 20160616
  Receipt Date: 20160704
  Transmission Date: 20161109
  Serious: Yes (Hospitalization, Disabling, Other)
  Sender: FDA-Public Use
  Company Number: JP-009507513-1605JPN011050

PATIENT
  Age: 81 Year
  Sex: Female
  Weight: 45 kg

DRUGS (12)
  1. FAMOTIDINE. [Concomitant]
     Active Substance: FAMOTIDINE
     Dosage: DAILY DOSAGE UNKNOWN
     Route: 048
  2. GLUCONSAN K [Concomitant]
     Dosage: 6 G, QD (DIVIDED DOSE FREQUENCY UNKNOWN)
     Route: 048
  3. BESOFTEN [Concomitant]
     Active Substance: SODIUM ALGINATE
     Dosage: DAILY DOSAGE UNKNOWN
     Route: 061
  4. SODIUM CHLORIDE. [Concomitant]
     Active Substance: SODIUM CHLORIDE
     Dosage: DIVIDED DOSE FREQUENCY UNKNOWN
     Route: 065
  5. JANUVIA [Suspect]
     Active Substance: SITAGLIPTIN PHOSPHATE
     Indication: DIABETES MELLITUS
     Dosage: 50 MG, QAM
     Route: 048
     Dates: start: 20150821, end: 20160516
  6. EBASTINE [Concomitant]
     Active Substance: EBASTINE
     Dosage: 10 MG, QD
     Route: 048
  7. NOVOLIN 30R [Concomitant]
     Active Substance: INSULIN HUMAN
     Dosage: DAILY DOSAGE UNKNOWN
     Route: 058
  8. GASMOTIN [Concomitant]
     Active Substance: MOSAPRIDE CITRATE
     Dosage: 1.5 G, QD (DIVIDED DOSE FREQUENCY UNKNOWN)
     Route: 048
  9. AZUNOL (GUAIAZULENE) [Concomitant]
     Dosage: DAILY DOSAGE UNKNOWN
     Route: 061
  10. MIYA-BM [Concomitant]
     Active Substance: CLOSTRIDIUM BUTYRICUM SPORES STRAIN M-55
     Dosage: 3 G, QD (DIVIDED DOSE FREQUENCY UNKNOWN)
     Route: 048
  11. BESOFTEN [Concomitant]
     Active Substance: SODIUM ALGINATE
     Dosage: DAILY DOSAGE UNKNOWN
     Route: 061
  12. INTENURSE [Concomitant]
     Dosage: DAILY DOSAGE UNKNOWN (FORMULATION:EXT)
     Route: 065

REACTIONS (3)
  - Pemphigoid [Recovering/Resolving]
  - Pneumonia aspiration [Unknown]
  - Femoral neck fracture [Unknown]

NARRATIVE: CASE EVENT DATE: 20150903
